FAERS Safety Report 24277412 (Version 1)
Quarter: 2024Q3

REPORT INFORMATION
  Report Type: Spontaneous
  Country: US (occurrence: US)
  Receive Date: 20240903
  Receipt Date: 20240903
  Transmission Date: 20241016
  Serious: Yes (Life-Threatening, Hospitalization, Other)
  Sender: SANDOZ
  Company Number: US-SANDOZ-SDZ2024US075979

PATIENT
  Age: 24 Year
  Sex: Female

DRUGS (1)
  1. DIGOXIN [Suspect]
     Active Substance: DIGOXIN
     Indication: Anaesthesia reversal
     Dosage: UNK
     Route: 065

REACTIONS (7)
  - Respiratory distress [Unknown]
  - Encephalitis [Recovering/Resolving]
  - Vestibular neuronitis [Recovering/Resolving]
  - Paraplegia [Recovering/Resolving]
  - Wrong product administered [Unknown]
  - Exposure during pregnancy [Unknown]
  - Incorrect route of product administration [Unknown]
